FAERS Safety Report 13820601 (Version 1)
Quarter: 2017Q3

REPORT INFORMATION
  Report Type: Spontaneous
  Country: US (occurrence: US)
  Receive Date: 20170801
  Receipt Date: 20170801
  Transmission Date: 20171127
  Serious: Yes (Other)
  Sender: FDA-Public Use
  Company Number: None

PATIENT
  Age: 26 Year
  Sex: Female

DRUGS (3)
  1. DICLEGIS [Concomitant]
     Active Substance: DOXYLAMINE SUCCINATE\PYRIDOXINE HYDROCHLORIDE
  2. TALTZ [Suspect]
     Active Substance: IXEKIZUMAB
     Indication: PSORIASIS
     Route: 058
     Dates: start: 20170130
  3. PHENDIMETRAZ [Concomitant]

REACTIONS (1)
  - Exposure during pregnancy [None]

NARRATIVE: CASE EVENT DATE: 2017
